FAERS Safety Report 22048504 (Version 2)
Quarter: 2023Q2

REPORT INFORMATION
  Report Type: Report from Study
  Country: JP (occurrence: JP)
  Receive Date: 20230301
  Receipt Date: 20230403
  Transmission Date: 20230721
  Serious: No
  Sender: FDA-Public Use
  Company Number: JP-GSK-JP2023JPN031249

PATIENT

DRUGS (1)
  1. SOTROVIMAB [Suspect]
     Active Substance: SOTROVIMAB
     Indication: COVID-19
     Dosage: 500 MG, 200 ML/H (100 ML/30 MIN)
     Route: 041
     Dates: start: 20221016

REACTIONS (2)
  - Product use issue [Unknown]
  - Off label use [Unknown]
